FAERS Safety Report 4352548-6 (Version None)
Quarter: 2004Q2

REPORT INFORMATION
  Report Type: 
  Country: None (occurrence: None)
  Receive Date: 20040503
  Receipt Date: 20040503
  Transmission Date: 20050107
  Serious: No
  Sender: FDA-Public Use
  Company Number: None

PATIENT
  Age: 72 Year
  Sex: Male
  Weight: 94 kg

DRUGS (7)
  1. SANDOSTATIN [Suspect]
     Indication: GASTROINTESTINAL HAEMORRHAGE
     Dosage: 25 MCG PER HOUR IV
     Route: 042
     Dates: start: 20040430, end: 20040501
  2. NS [Concomitant]
  3. BENADRY [Concomitant]
  4. LACTULOSE [Concomitant]
  5. MORPHINE SULFATE [Concomitant]
  6. PROTONIX [Concomitant]
  7. AMBIEN [Concomitant]

REACTIONS (1)
  - MEDICATION ERROR [None]
